FAERS Safety Report 8525045-1 (Version None)
Quarter: 2012Q3

REPORT INFORMATION
  Report Type: 
  Country: None (occurrence: None)
  Receive Date: 20120720
  Receipt Date: 20120710
  Transmission Date: 20120928
  Serious: No
  Sender: FDA-Public Use
  Company Number: US-B.I. PHARMACEUTICALS,INC./RIDGEFIELD-2012-BP-15413BP

PATIENT
  Sex: Female

DRUGS (4)
  1. PRADAXA [Suspect]
     Dates: start: 20101101, end: 20110601
  2. ATENOLOL [Concomitant]
  3. COUMADIN [Concomitant]
  4. SPIRIVA [Suspect]
     Indication: CHRONIC OBSTRUCTIVE PULMONARY DISEASE
     Dosage: 18 MCG
     Route: 055
     Dates: start: 20120627

REACTIONS (5)
  - ERUCTATION [None]
  - DYSPEPSIA [None]
  - SLEEP APNOEA SYNDROME [None]
  - POOR QUALITY SLEEP [None]
  - ABDOMINAL DISCOMFORT [None]
